FAERS Safety Report 7497084-3 (Version None)
Quarter: 2011Q2

REPORT INFORMATION
  Report Type: 
  Country: None (occurrence: None)
  Receive Date: 20110523
  Receipt Date: 20110512
  Transmission Date: 20111010
  Serious: Yes (Hospitalization)
  Sender: FDA-Public Use
  Company Number: US-ASTRAZENECA-2011SE28774

PATIENT
  Age: 48 Year
  Sex: Female

DRUGS (6)
  1. COLCRYS [Concomitant]
     Indication: GOUT
  2. PROPRANOLOL [Concomitant]
     Indication: HEADACHE
  3. SEROQUEL [Suspect]
     Indication: BIPOLAR DISORDER
     Route: 048
  4. SYNTHROID [Concomitant]
     Indication: THYROID DISORDER
  5. LAMICTAL [Concomitant]
  6. CLONAZEPAM [Concomitant]
     Indication: CONVULSION

REACTIONS (2)
  - SHOULDER OPERATION [None]
  - PERIARTHRITIS [None]
